FAERS Safety Report 7246039-2 (Version None)
Quarter: 2011Q1

REPORT INFORMATION
  Report Type: 
  Country: None (occurrence: None)
  Receive Date: 20110126
  Receipt Date: 20110124
  Transmission Date: 20110831
  Serious: Yes (Other)
  Sender: FDA-Public Use
  Company Number: PR-ABBOTT-11P-163-0699994-00

PATIENT
  Sex: Female
  Weight: 63.56 kg

DRUGS (6)
  1. THEO-24 [Concomitant]
     Indication: ASTHMA
  2. SIMVASTATIN [Concomitant]
     Indication: BLOOD CHOLESTEROL INCREASED
  3. ALBUTEROL [Concomitant]
     Indication: ASTHMA
  4. SINGULAIR [Concomitant]
     Indication: ASTHMA
  5. HUMIRA [Suspect]
     Indication: RHEUMATOID ARTHRITIS
     Dates: start: 20080101
  6. VASOTEC [Concomitant]
     Indication: HYPERTENSION

REACTIONS (2)
  - BASAL CELL CARCINOMA [None]
  - SKIN MASS [None]
